FAERS Safety Report 25412671 (Version 2)
Quarter: 2025Q2

REPORT INFORMATION
  Report Type: Spontaneous
  Country: IN (occurrence: IN)
  Receive Date: 20250609
  Receipt Date: 20250623
  Transmission Date: 20250717
  Serious: Yes (Death)
  Sender: AMGEN
  Company Number: IN-AMGEN-INDSP2025109643

PATIENT
  Sex: Male

DRUGS (1)
  1. ROMIPLOSTIM [Suspect]
     Active Substance: ROMIPLOSTIM
     Indication: Exposure during pregnancy
     Route: 064

REACTIONS (1)
  - Foetal death [Fatal]
